FAERS Safety Report 25889674 (Version 1)
Quarter: 2025Q4

REPORT INFORMATION
  Report Type: Report from Study
  Country: US (occurrence: US)
  Receive Date: 20251007
  Receipt Date: 20251007
  Transmission Date: 20260117
  Serious: Yes (Death)
  Sender: ROCHE
  Company Number: US-ROCHE-10000401881

PATIENT
  Age: 60 Year
  Sex: Female

DRUGS (2)
  1. AVASTIN [Suspect]
     Active Substance: BEVACIZUMAB
     Indication: Endometrial cancer
     Dosage: MORE DOSAGE INFORMATION: INFUSE 10MG/KG (935MG)
     Route: 042
  2. AVASTIN [Suspect]
     Active Substance: BEVACIZUMAB
     Indication: Endometrial cancer
     Dosage: MORE DOSAGE INFORMATION: INFUSE 10MG/KG (935MG)
     Route: 042

REACTIONS (1)
  - Disease progression [Fatal]
